FAERS Safety Report 25359059 (Version 1)
Quarter: 2025Q2

REPORT INFORMATION
  Report Type: Spontaneous
  Country: GB (occurrence: GB)
  Receive Date: 20250526
  Receipt Date: 20250526
  Transmission Date: 20250716
  Serious: Yes (Other)
  Sender: MYLAN
  Company Number: GB-MHRA-TPP24432430C14439635YC1747403777865

PATIENT
  Age: 57 Year
  Sex: Male
  Weight: 71 kg

DRUGS (12)
  1. ATORVASTATIN [Suspect]
     Active Substance: ATORVASTATIN
     Indication: Product used for unknown indication
  2. ATORVASTATIN [Suspect]
     Active Substance: ATORVASTATIN
     Route: 065
  3. ATORVASTATIN [Suspect]
     Active Substance: ATORVASTATIN
     Route: 065
  4. ATORVASTATIN [Suspect]
     Active Substance: ATORVASTATIN
  5. CLARITHROMYCIN [Concomitant]
     Active Substance: CLARITHROMYCIN
     Dosage: 1 DOSAGE FORM, BID (TAKE ONE EVERY 12 HRS; DO NOT USE YOUR ATORVAST.)
     Dates: start: 20250329, end: 20250403
  6. CLARITHROMYCIN [Concomitant]
     Active Substance: CLARITHROMYCIN
     Dosage: 1 DOSAGE FORM, BID (TAKE ONE EVERY 12 HRS; DO NOT USE YOUR ATORVAST.)
     Route: 065
     Dates: start: 20250329, end: 20250403
  7. CLARITHROMYCIN [Concomitant]
     Active Substance: CLARITHROMYCIN
     Dosage: 1 DOSAGE FORM, BID (TAKE ONE EVERY 12 HRS; DO NOT USE YOUR ATORVAST.)
     Route: 065
     Dates: start: 20250329, end: 20250403
  8. CLARITHROMYCIN [Concomitant]
     Active Substance: CLARITHROMYCIN
     Dosage: 1 DOSAGE FORM, BID (TAKE ONE EVERY 12 HRS; DO NOT USE YOUR ATORVAST.)
     Dates: start: 20250329, end: 20250403
  9. Easyhaler [Concomitant]
     Dates: start: 20250403, end: 20250417
  10. Easyhaler [Concomitant]
     Route: 055
     Dates: start: 20250403, end: 20250417
  11. Easyhaler [Concomitant]
     Route: 055
     Dates: start: 20250403, end: 20250417
  12. Easyhaler [Concomitant]
     Dates: start: 20250403, end: 20250417

REACTIONS (4)
  - Amnesia [Unknown]
  - Heart rate increased [Unknown]
  - Insomnia [Recovered/Resolved]
  - Tinnitus [Recovering/Resolving]

NARRATIVE: CASE EVENT DATE: 20250505
